FAERS Safety Report 5468939-6 (Version None)
Quarter: 2007Q3

REPORT INFORMATION
  Report Type: 
  Country: None (occurrence: None)
  Receive Date: 20070926
  Receipt Date: 20070917
  Transmission Date: 20080115
  Serious: Yes (Other)
  Sender: FDA-Public Use
  Company Number: PHHO2004IT09060

PATIENT
  Age: 71 Year
  Sex: Female
  Weight: 64 kg

DRUGS (1)
  1. TAMOXIFEN CITRATE [Suspect]
     Indication: BREAST CANCER
     Dosage: DOUBLE BLIND
     Route: 048
     Dates: start: 20000808, end: 20041001

REACTIONS (3)
  - ATRIAL FIBRILLATION [None]
  - CARDIAC DISORDER [None]
  - INTRACARDIAC THROMBUS [None]
